FAERS Safety Report 11457459 (Version 1)
Quarter: 2015Q3

REPORT INFORMATION
  Report Type: Spontaneous
  Country: US (occurrence: None)
  Receive Date: 20150903
  Receipt Date: 20150903
  Transmission Date: 20151125
  Serious: Yes (Other)
  Sender: FDA-Public Use
  Company Number: None

PATIENT
  Age: 67 Year
  Sex: Male

DRUGS (1)
  1. TEMOZOLOMIDE 140MG [Suspect]
     Active Substance: TEMOZOLOMIDE
     Indication: BRAIN NEOPLASM MALIGNANT
     Dosage: FOR 5 DAYS OF 28 DAY CYCLE
     Route: 048

REACTIONS (2)
  - Drug dispensing error [None]
  - Underdose [None]

NARRATIVE: CASE EVENT DATE: 20150820
